FAERS Safety Report 7739176-7 (Version None)
Quarter: 2011Q3

REPORT INFORMATION
  Report Type: 
  Country: None (occurrence: None)
  Receive Date: 20110909
  Receipt Date: 20110829
  Transmission Date: 20111222
  Serious: Yes (Other)
  Sender: FDA-Public Use
  Company Number: CA-JNJFOC-20110812958

PATIENT
  Sex: Female
  Weight: 74.84 kg

DRUGS (9)
  1. STELARA [Suspect]
     Indication: PSORIASIS
     Route: 058
     Dates: start: 20110719
  2. VENLAFAXINE HYDROCHLORIDE [Concomitant]
  3. VITAMIN B6 [Concomitant]
  4. AVAPRO [Concomitant]
  5. SYNTHROID [Concomitant]
  6. GLUCOSAMINE [Concomitant]
  7. HYDROCHLOROTHIAZIDE [Concomitant]
  8. FISH OIL [Concomitant]
  9. VITAMIN B-12 [Concomitant]

REACTIONS (1)
  - EYE INFECTION BACTERIAL [None]
